FAERS Safety Report 20485893 (Version 2)
Quarter: 2022Q3

REPORT INFORMATION
  Report Type: Spontaneous
  Country: US (occurrence: None)
  Receive Date: 20220217
  Receipt Date: 20220819
  Transmission Date: 20221026
  Serious: Yes (Death, Other)
  Sender: FDA-Public Use
  Company Number: 2022A066365

PATIENT
  Age: 80 Year
  Sex: Female
  Weight: 58.5 kg

DRUGS (51)
  1. NEXIUM [Suspect]
     Active Substance: ESOMEPRAZOLE MAGNESIUM
     Indication: Gastrooesophageal reflux disease
     Route: 048
     Dates: start: 2003, end: 2021
  2. NEXIUM [Suspect]
     Active Substance: ESOMEPRAZOLE MAGNESIUM
     Indication: Gastrooesophageal reflux disease
     Dosage: GENERIC
     Route: 048
  3. NEXIUM 24HR [Suspect]
     Active Substance: ESOMEPRAZOLE MAGNESIUM
     Indication: Gastrooesophageal reflux disease
     Route: 048
     Dates: start: 2003, end: 2021
  4. NEXIUM 24HR [Suspect]
     Active Substance: ESOMEPRAZOLE MAGNESIUM
     Indication: Gastrooesophageal reflux disease
     Route: 048
     Dates: start: 201409, end: 20210921
  5. PRILOSEC [Suspect]
     Active Substance: OMEPRAZOLE MAGNESIUM
     Indication: Gastrooesophageal reflux disease
     Route: 048
     Dates: start: 2003, end: 2021
  6. PRILOSEC [Suspect]
     Active Substance: OMEPRAZOLE MAGNESIUM
     Indication: Gastrooesophageal reflux disease
     Route: 048
     Dates: start: 2003, end: 2018
  7. PRILOSEC [Suspect]
     Active Substance: OMEPRAZOLE MAGNESIUM
     Indication: Gastrooesophageal reflux disease
     Dosage: GENERIC
     Route: 048
     Dates: start: 2013, end: 2018
  8. PRILOSEC OTC [Suspect]
     Active Substance: OMEPRAZOLE MAGNESIUM
     Indication: Gastrooesophageal reflux disease
     Route: 048
     Dates: start: 2003, end: 2021
  9. PRILOSEC OTC [Suspect]
     Active Substance: OMEPRAZOLE MAGNESIUM
     Indication: Gastrooesophageal reflux disease
     Route: 048
     Dates: start: 2003, end: 2019
  10. PROTONIX [Suspect]
     Active Substance: PANTOPRAZOLE SODIUM
     Indication: Gastrooesophageal reflux disease
     Route: 065
     Dates: start: 2003, end: 2021
  11. PROTONIX [Suspect]
     Active Substance: PANTOPRAZOLE SODIUM
     Indication: Gastrooesophageal reflux disease
     Route: 065
     Dates: start: 2012, end: 2019
  12. LANSOPRAZOLE [Suspect]
     Active Substance: LANSOPRAZOLE
     Indication: Gastrooesophageal reflux disease
     Route: 065
     Dates: start: 2002
  13. AMOXICILLIN [Concomitant]
     Active Substance: AMOXICILLIN
     Indication: Infection
     Dates: start: 2012
  14. ATORVASTATIN [Concomitant]
     Active Substance: ATORVASTATIN
     Indication: Blood cholesterol
     Dates: start: 2011, end: 2015
  15. AVELOX [Concomitant]
     Active Substance: MOXIFLOXACIN HYDROCHLORIDE
     Indication: Infection
     Dates: start: 2011
  16. AZITHROMYCIN [Concomitant]
     Active Substance: AZITHROMYCIN
     Indication: Infection
     Dates: start: 2013, end: 2015
  17. BENICAR [Concomitant]
     Active Substance: OLMESARTAN MEDOXOMIL
     Indication: Hypertension
     Dates: start: 2009, end: 2012
  18. CEFUROXIME AXETIL [Concomitant]
     Active Substance: CEFUROXIME AXETIL
     Indication: Infection
     Dates: start: 2009
  19. CIPRO [Concomitant]
     Active Substance: CIPROFLOXACIN HYDROCHLORIDE
     Indication: Infection
     Dates: start: 2010, end: 2014
  20. CIPROFLOXACIN [Concomitant]
     Active Substance: CIPROFLOXACIN
     Indication: Infection
     Dates: start: 2009, end: 2018
  21. DOXICYCLINE [Concomitant]
     Indication: Infection
     Dates: start: 2011, end: 2014
  22. FUROSEMIDE [Concomitant]
     Active Substance: FUROSEMIDE
     Indication: Fluid retention
     Dates: start: 2009, end: 2015
  23. FUROSEMIDE [Concomitant]
     Active Substance: FUROSEMIDE
     Indication: Swelling
     Dates: start: 2009, end: 2015
  24. LEVAQUIN [Concomitant]
     Active Substance: LEVOFLOXACIN
     Indication: Infection
     Dates: start: 2009, end: 2010
  25. LEVOFLOXACIN [Concomitant]
     Active Substance: LEVOFLOXACIN
     Indication: Infection
     Dates: start: 2012, end: 2015
  26. LIPITOR [Concomitant]
     Active Substance: ATORVASTATIN CALCIUM
     Indication: Blood cholesterol
     Dates: start: 2009, end: 2012
  27. LOSARTAN [Concomitant]
     Active Substance: LOSARTAN
     Indication: Hypertension
     Dates: start: 2013, end: 2015
  28. PENICILLIN [Concomitant]
     Active Substance: PENICILLIN
     Indication: Infection
     Dates: start: 2013, end: 2015
  29. QUALAQUIN [Concomitant]
     Active Substance: QUININE SULFATE
     Indication: Muscle spasms
     Dates: start: 2009, end: 2015
  30. SULFAMETHOXAZOLE [Concomitant]
     Active Substance: SULFAMETHOXAZOLE
     Indication: Infection
     Dates: start: 2011, end: 2015
  31. TRAMADOL [Concomitant]
     Active Substance: TRAMADOL
     Indication: Pain
     Dates: start: 2010, end: 2015
  32. FAMOTIDINE [Concomitant]
     Active Substance: FAMOTIDINE
     Dates: start: 2013
  33. FAMOTIDINE [Concomitant]
     Active Substance: FAMOTIDINE
     Dates: start: 2018, end: 2019
  34. ASPIRIN [Concomitant]
     Active Substance: ASPIRIN
  35. CARDURA [Concomitant]
     Active Substance: DOXAZOSIN MESYLATE
  36. ALPRAZOLAM [Concomitant]
     Active Substance: ALPRAZOLAM
  37. DILTIAZEM [Concomitant]
     Active Substance: DILTIAZEM
  38. BACTROBAN [Concomitant]
     Active Substance: MUPIROCIN\MUPIROCIN CALCIUM
  39. ULORIC [Concomitant]
     Active Substance: FEBUXOSTAT
  40. ONDANSETRON [Concomitant]
     Active Substance: ONDANSETRON
  41. ZEMPLAR [Concomitant]
     Active Substance: PARICALCITOL
  42. FOLIC ACID [Concomitant]
     Active Substance: FOLIC ACID
  43. PREMARIN [Concomitant]
     Active Substance: ESTROGENS, CONJUGATED
  44. SYNTHROID [Concomitant]
     Active Substance: LEVOTHYROXINE SODIUM
  45. CHOLESTYRAMINE [Concomitant]
     Active Substance: CHOLESTYRAMINE
  46. MECLIZINE [Concomitant]
     Active Substance: MECLIZINE HYDROCHLORIDE
  47. FERROUS SULFATE [Concomitant]
     Active Substance: FERROUS SULFATE
  48. LASIX [Concomitant]
     Active Substance: FUROSEMIDE
  49. DIOVAN [Concomitant]
     Active Substance: VALSARTAN
  50. COLACE [Concomitant]
     Active Substance: DOCUSATE SODIUM
  51. PREDNISONE [Concomitant]
     Active Substance: PREDNISONE

REACTIONS (5)
  - COVID-19 pneumonia [Fatal]
  - Chronic kidney disease [Unknown]
  - Acute kidney injury [Unknown]
  - End stage renal disease [Unknown]
  - Nephrogenic anaemia [Unknown]

NARRATIVE: CASE EVENT DATE: 20190101
